FAERS Safety Report 8941587 (Version 1)
Quarter: 2012Q4

REPORT INFORMATION
  Report Type: 
  Country: FR (occurrence: FR)
  Receive Date: 20121203
  Receipt Date: 20121203
  Transmission Date: 20130627
  Serious: Yes (Hospitalization)
  Sender: FDA-Public Use
  Company Number: FR-ASTRAZENECA-2012SE89585

PATIENT
  Sex: Male

DRUGS (2)
  1. XEROQUEL [Suspect]
     Indication: MANIA
     Route: 048
  2. TERCIAN [Concomitant]

REACTIONS (1)
  - Intestinal obstruction [Unknown]
